FAERS Safety Report 8504567-3 (Version None)
Quarter: 2012Q3

REPORT INFORMATION
  Report Type: 
  Country: None (occurrence: None)
  Receive Date: 20120711
  Receipt Date: 20111012
  Transmission Date: 20120928
  Serious: Yes (Death, Other)
  Sender: FDA-Public Use
  Company Number: US-ROCHE-1085985

PATIENT
  Sex: Male

DRUGS (4)
  1. ZELBORAF [Suspect]
  2. ZELBORAF [Suspect]
     Indication: BLADDER CANCER
  3. ZELBORAF [Suspect]
     Indication: MALIGNANT MELANOMA
  4. ZELBORAF [Suspect]
     Indication: BONE NEOPLASM MALIGNANT

REACTIONS (2)
  - DYSPNOEA [None]
  - DEATH [None]
